FAERS Safety Report 10464055 (Version 1)
Quarter: 2014Q3

REPORT INFORMATION
  Report Type: Spontaneous
  Country: FR (occurrence: FR)
  Receive Date: 20140919
  Receipt Date: 20140919
  Transmission Date: 20150326
  Serious: Yes (Hospitalization)
  Sender: FDA-Public Use
  Company Number: FR-SA-2014SA126933

PATIENT
  Age: 34 Day
  Sex: Male
  Weight: 2.4 kg

DRUGS (1)
  1. ERGOCALCIFEROL. [Suspect]
     Active Substance: ERGOCALCIFEROL
     Indication: PROPHYLAXIS
     Dosage: DOSE:600000 UNIT(S)
     Route: 048

REACTIONS (9)
  - Nephrocalcinosis [Recovered/Resolved]
  - Blood 25-hydroxycholecalciferol increased [Recovered/Resolved]
  - Malnutrition [Recovered/Resolved]
  - Hypercalcaemia [Recovered/Resolved]
  - Dehydration [Recovered/Resolved]
  - Hypercalciuria [Recovered/Resolved]
  - Weight decreased [Recovering/Resolving]
  - Blood parathyroid hormone decreased [Recovered/Resolved]
  - Polyuria [Recovered/Resolved]
